FAERS Safety Report 14439094 (Version 2)
Quarter: 2018Q2

REPORT INFORMATION
  Report Type: Spontaneous
  Country: US (occurrence: US)
  Receive Date: 20180125
  Receipt Date: 20180427
  Transmission Date: 20180711
  Serious: Yes (Hospitalization)
  Sender: FDA-Public Use
  Company Number: US-JNJFOC-20180115309

PATIENT
  Age: 49 Year
  Sex: Male
  Weight: 80.74 kg

DRUGS (3)
  1. XARELTO [Suspect]
     Active Substance: RIVAROXABAN
     Indication: PROTEIN S DEFICIENCY
     Route: 048
     Dates: start: 20151208, end: 20160713
  2. XARELTO [Suspect]
     Active Substance: RIVAROXABAN
     Indication: METHYLENETETRAHYDROFOLATE REDUCTASE GENE MUTATION
     Route: 048
     Dates: start: 20151208, end: 20160713
  3. XARELTO [Suspect]
     Active Substance: RIVAROXABAN
     Indication: HYPERHOMOCYSTEINAEMIA
     Route: 048
     Dates: start: 20151208, end: 20160713

REACTIONS (4)
  - Off label use [Unknown]
  - Conjunctival haemorrhage [Unknown]
  - Subdural haematoma [Unknown]
  - Product use in unapproved indication [Unknown]

NARRATIVE: CASE EVENT DATE: 20151208
